FAERS Safety Report 4509441-5 (Version None)
Quarter: 2004Q4

REPORT INFORMATION
  Report Type: 
  Country: None (occurrence: None)
  Receive Date: 20041025
  Receipt Date: 20040211
  Transmission Date: 20050328
  Serious: Yes (Hospitalization)
  Sender: FDA-Public Use
  Company Number: US-JNJFOC-20040202689

PATIENT
  Age: 70 Year
  Sex: Female

DRUGS (3)
  1. REMICADE [Suspect]
     Indication: RHEUMATOID ARTHRITIS
     Dosage: ^4 INFUSION^
  2. METHOTREXATE SODIUM [Concomitant]
  3. STEROIDS (CORTICOSTEROID NOS) [Concomitant]

REACTIONS (2)
  - PYREXIA [None]
  - TUBERCULOSIS [None]
